FAERS Safety Report 8511785-7 (Version None)
Quarter: 2012Q3

REPORT INFORMATION
  Report Type: 
  Country: None (occurrence: None)
  Receive Date: 20120711
  Receipt Date: 20120711
  Transmission Date: 20120928
  Serious: Yes (Hospitalization)
  Sender: FDA-Public Use
  Company Number: None

PATIENT
  Age: 61 Year
  Sex: Female
  Weight: 61.417 kg

DRUGS (6)
  1. REVLIMID [Suspect]
     Indication: MULTIPLE MYELOMA
     Dosage: DAYS 1-14
     Dates: start: 20120702, end: 20120703
  2. PRILOSEC [Concomitant]
  3. VELCADE [Suspect]
     Indication: MULTIPLE MYELOMA
     Dosage: DAYS 1, 4, 8, 11
     Dates: start: 20120702, end: 20120702
  4. LOVENOX [Concomitant]
  5. ACYCLOVIR [Concomitant]
  6. DEXAMETHASONE [Suspect]
     Indication: MULTIPLE MYELOMA
     Dosage: DAY OF AND AFTER VELCADE
     Dates: start: 20120702, end: 20120703

REACTIONS (4)
  - CHILLS [None]
  - ANAEMIA [None]
  - FEBRILE NEUTROPENIA [None]
  - THROMBOCYTOPENIA [None]
